FAERS Safety Report 6264379-0 (Version None)
Quarter: 2009Q3

REPORT INFORMATION
  Report Type: 
  Country: None (occurrence: None)
  Receive Date: 20090710
  Receipt Date: 20090703
  Transmission Date: 20100115
  Serious: Yes (Other)
  Sender: FDA-Public Use
  Company Number: B0579049A

PATIENT
  Sex: Female

DRUGS (5)
  1. VALTREX [Suspect]
     Indication: HERPES ZOSTER
     Dosage: 1000MG THREE TIMES PER DAY
     Route: 048
     Dates: start: 20090609, end: 20090611
  2. DASEN [Concomitant]
     Indication: INFLAMMATION
     Dosage: 30MG PER DAY
     Route: 048
     Dates: start: 20090609, end: 20090611
  3. UNKNOWN DRUG [Concomitant]
     Indication: BACTERIAL INFECTION
     Dosage: 300MG PER DAY
     Route: 048
     Dates: start: 20090609, end: 20090611
  4. BIOFERMIN R [Concomitant]
     Dosage: 12MG PER DAY
     Route: 048
     Dates: start: 20090609, end: 20090611
  5. GENTAMICIN [Concomitant]
     Indication: BACTERIAL INFECTION
     Route: 061
     Dates: start: 20090609

REACTIONS (2)
  - DYSPNOEA [None]
  - RESPIRATORY DEPRESSION [None]
